FAERS Safety Report 11536184 (Version 1)
Quarter: 2015Q3

REPORT INFORMATION
  Report Type: Spontaneous
  Country: US (occurrence: None)
  Receive Date: 20150921
  Receipt Date: 20150921
  Transmission Date: 20151125
  Serious: No
  Sender: FDA-Public Use
  Company Number: None

PATIENT
  Age: 62 Year
  Sex: Female
  Weight: 53.52 kg

DRUGS (17)
  1. LIOTHYRINONE [Concomitant]
  2. CALCIUM [Concomitant]
     Active Substance: CALCIUM
  3. ALENDRONATE SODIUM. [Suspect]
     Active Substance: ALENDRONATE SODIUM
     Indication: OSTEOPOROSIS
     Route: 048
     Dates: start: 20150821, end: 20150911
  4. HYDROCHLOROTHIAZIDE/TRIAMTERENE [Concomitant]
     Active Substance: HYDROCHLOROTHIAZIDE\TRIAMTERENE
  5. CLINDAMYCIN [Concomitant]
     Active Substance: CLINDAMYCIN\CLINDAMYCIN PHOSPHATE
  6. LEUTEIN [Concomitant]
  7. VOLTAREN [Concomitant]
     Active Substance: DICLOFENAC SODIUM
  8. VITAMIN K2 [Concomitant]
     Active Substance: MENAQUINONE 6
  9. POTASSION CHLORIDE [Concomitant]
  10. ALENDRONATE SODIUM. [Suspect]
     Active Substance: ALENDRONATE SODIUM
     Indication: OSTEOPENIA
     Route: 048
     Dates: start: 20150821, end: 20150911
  11. SYNTHROID [Concomitant]
     Active Substance: LEVOTHYROXINE SODIUM
  12. XEANTHIN [Concomitant]
  13. PSEUDOEPHDRINE [Concomitant]
  14. CETIRIZINE [Concomitant]
     Active Substance: CETIRIZINE HYDROCHLORIDE
  15. GLUCOSAMINE/CHONDROITIN [Concomitant]
  16. MULTIVITAMIN [Concomitant]
     Active Substance: VITAMINS
  17. VITAMIN D3 [Concomitant]
     Active Substance: CHOLECALCIFEROL

REACTIONS (7)
  - Dysgeusia [None]
  - Odynophagia [None]
  - Abdominal pain upper [None]
  - Headache [None]
  - Dysphagia [None]
  - Chest pain [None]
  - Constipation [None]

NARRATIVE: CASE EVENT DATE: 20150917
